FAERS Safety Report 23936839 (Version 1)
Quarter: 2024Q2

REPORT INFORMATION
  Report Type: Spontaneous
  Country: US (occurrence: US)
  Receive Date: 20240604
  Receipt Date: 20240604
  Transmission Date: 20240715
  Serious: No
  Sender: FDA-Public Use
  Company Number: US-SEPTODONT-2023018071

PATIENT
  Age: 27 Year
  Sex: Male

DRUGS (2)
  1. ARTICAINE HYDROCHLORIDE\EPINEPHRINE HYDROCHLORIDE [Suspect]
     Active Substance: ARTICAINE HYDROCHLORIDE\EPINEPHRINE HYDROCHLORIDE
     Indication: Dental local anaesthesia
     Dosage: 2 ARTICAINE
     Route: 004
     Dates: start: 20230909, end: 20230909
  2. MEPIVACAINE HYDROCHLORIDE [Suspect]
     Active Substance: MEPIVACAINE HYDROCHLORIDE
     Indication: Dental local anaesthesia
     Dosage: 1 MEPIVACAINE
     Route: 004
     Dates: start: 20230909, end: 20230909

REACTIONS (2)
  - Drug ineffective [Unknown]
  - Dental discomfort [Recovering/Resolving]

NARRATIVE: CASE EVENT DATE: 20230909
